FAERS Safety Report 8982682 (Version 2)
Quarter: 2013Q1

REPORT INFORMATION
  Report Type: Spontaneous
  Country: US (occurrence: US)
  Receive Date: 20121224
  Receipt Date: 20130103
  Transmission Date: 20140127
  Serious: Yes (Hospitalization, Other)
  Sender: FDA-Public Use
  Company Number: US-JNJFOC-20121211326

PATIENT
  Age: 39 None
  Sex: Male
  Weight: 86.18 kg

DRUGS (1)
  1. INVEGA SUSTENNA [Suspect]
     Indication: SCHIZOPHRENIA
     Route: 030
     Dates: start: 201208

REACTIONS (4)
  - Infectious mononucleosis [Not Recovered/Not Resolved]
  - Psychotic disorder [Unknown]
  - Self injurious behaviour [Unknown]
  - Drug effect decreased [Unknown]
